FAERS Safety Report 15711663 (Version 1)
Quarter: 2018Q4

REPORT INFORMATION
  Report Type: Report from Study
  Country: None (occurrence: US)
  Receive Date: 20181212
  Receipt Date: 20181212
  Transmission Date: 20190205
  Serious: Yes (Hospitalization, Other)
  Sender: FDA-Public Use
  Company Number: US-ABBVIE-18S-163-2580202-00

PATIENT
  Age: 38 Year
  Sex: Female

DRUGS (1)
  1. CREON [Suspect]
     Active Substance: PANCRELIPASE AMYLASE\PANCRELIPASE LIPASE\PANCRELIPASE PROTEASE
     Indication: PRODUCT USED FOR UNKNOWN INDICATION
     Route: 048

REACTIONS (26)
  - Oesophageal operation [Unknown]
  - Knee arthroplasty [Unknown]
  - Pancreatectomy [Unknown]
  - Pneumonia streptococcal [Unknown]
  - Autoimmune haemolytic anaemia [Unknown]
  - Cholecystectomy [Unknown]
  - Gastrooesophageal reflux disease [Unknown]
  - Oesophageal operation [Unknown]
  - Rotator cuff repair [Unknown]
  - Back pain [Unknown]
  - Kidney angiomyolipoma [Unknown]
  - Ligament operation [Unknown]
  - Knee arthroplasty [Unknown]
  - Lung operation [Unknown]
  - Gastrointestinal procedural complication [Unknown]
  - Pneumonia [Unknown]
  - Hip arthroplasty [Unknown]
  - Infection [Unknown]
  - Knee operation [Unknown]
  - Pancreatic carcinoma [Unknown]
  - Splenectomy [Unknown]
  - Knee arthroplasty [Unknown]
  - Cataract [Unknown]
  - Back disorder [Unknown]
  - Hip arthroplasty [Unknown]
  - Seizure [Unknown]

NARRATIVE: CASE EVENT DATE: 198810
